FAERS Safety Report 10273520 (Version 1)
Quarter: 2014Q1

REPORT INFORMATION
  Report Type: Spontaneous
  Country: US (occurrence: None)
  Receive Date: 20140306
  Receipt Date: 20140306
  Transmission Date: 20141002
  Serious: Yes (Hospitalization)
  Sender: FDA-Public Use
  Company Number: 163-21880-13082341

PATIENT
  Age: 56 Year
  Sex: Male
  Weight: 75.21 kg

DRUGS (3)
  1. REVLIMID [Suspect]
     Indication: B-CELL LYMPHOMA
     Route: 048
     Dates: start: 20130514
  2. RITUXAN (RITUXIMAB) (UNKNOWN) [Concomitant]
  3. MEDICATIONS FOR SUGAR OTHER DRUG USED FOR SUGAR (OTHER DRUGS USED IN DIABETES) (UNKNOWN) [Concomitant]

REACTIONS (4)
  - Non-Hodgkin^s lymphoma [None]
  - Drug intolerance [None]
  - Local swelling [None]
  - Neutropenia [None]
